FAERS Safety Report 19746290 (Version 1)
Quarter: 2021Q3

REPORT INFORMATION
  Report Type: Report from Study
  Country: US (occurrence: US)
  Receive Date: 20210826
  Receipt Date: 20210826
  Transmission Date: 20211014
  Serious: Yes (Hospitalization, Other)
  Sender: FDA-Public Use
  Company Number: US-AMGEN-USASL2021130682

PATIENT
  Age: 68 Year
  Sex: Male

DRUGS (2)
  1. VECTIBIX [Suspect]
     Active Substance: PANITUMUMAB
     Indication: COLON CANCER
     Dosage: 920 MILLIGRAM, Q4WK
     Route: 042
     Dates: start: 201901
  2. VECTIBIX [Suspect]
     Active Substance: PANITUMUMAB
     Dosage: 920 MILLIGRAM, Q4WK
     Route: 042

REACTIONS (3)
  - Off label use [Unknown]
  - Rash [Unknown]
  - Gastroenteritis [Unknown]

NARRATIVE: CASE EVENT DATE: 2021
